FAERS Safety Report 4507007-4 (Version None)
Quarter: 2004Q4

REPORT INFORMATION
  Report Type: 
  Country: None (occurrence: None)
  Receive Date: 20041117
  Receipt Date: 20041103
  Transmission Date: 20050328
  Serious: Yes (Death)
  Sender: FDA-Public Use
  Company Number: 2004EU001306

PATIENT
  Age: 61 Year
  Sex: Male

DRUGS (1)
  1. FK506      (TACROLIMUS CAPSULES) [Suspect]
     Indication: LIVER TRANSPLANT
     Dates: start: 20040213, end: 20040215

REACTIONS (2)
  - LUNG DISORDER [None]
  - SEPTIC SHOCK [None]
